FAERS Safety Report 20123846 (Version 1)
Quarter: 2021Q4

REPORT INFORMATION
  Report Type: Spontaneous
  Country: US (occurrence: US)
  Receive Date: 20211129
  Receipt Date: 20211129
  Transmission Date: 20220303
  Serious: No
  Sender: FDA-Public Use
  Company Number: US-UCBSA-2021037730

PATIENT
  Sex: Female

DRUGS (5)
  1. VIMPAT [Suspect]
     Active Substance: LACOSAMIDE
     Indication: Seizure
     Dosage: 5 MILLIGRAM
  2. VIMPAT [Suspect]
     Active Substance: LACOSAMIDE
     Dosage: 10 MILLIGRAM, 2X/DAY (BID)
  3. VIMPAT [Suspect]
     Active Substance: LACOSAMIDE
     Dosage: 15 MILLILITER, 2X/DAY (BID)
     Dates: start: 202012
  4. VIMPAT [Suspect]
     Active Substance: LACOSAMIDE
     Dosage: 10ML MORNING AND 5ML EVENING
  5. VIMPAT [Suspect]
     Active Substance: LACOSAMIDE
     Dosage: 15 MILLIGRAM, 2X/DAY (BID)
     Dates: start: 202105

REACTIONS (5)
  - Hypersensitivity [Not Recovered/Not Resolved]
  - Pruritus [Not Recovered/Not Resolved]
  - Erythema [Not Recovered/Not Resolved]
  - Swelling [Not Recovered/Not Resolved]
  - Product use issue [Unknown]
